FAERS Safety Report 8726743 (Version 2)
Quarter: 2012Q4

REPORT INFORMATION
  Report Type: 
  Country: DE (occurrence: DE)
  Receive Date: 20120816
  Receipt Date: 20120829
  Transmission Date: 20130627
  Serious: Yes (Other)
  Sender: FDA-Public Use
  Company Number: DE-BAYER-2012-081066

PATIENT
  Age: 31 Year
  Sex: Female

DRUGS (2)
  1. YAZ [Suspect]
     Dosage: UNK
     Route: 048
     Dates: start: 201206
  2. ETHINYL ESTRADIOL\LEVONORGESTREL ACETATE [Suspect]
     Dosage: UNK
     Dates: end: 201206

REACTIONS (1)
  - Dental fistula [Not Recovered/Not Resolved]
